FAERS Safety Report 5874405-6 (Version None)
Quarter: 2008Q3

REPORT INFORMATION
  Report Type: 
  Country: None (occurrence: None)
  Receive Date: 20080908
  Receipt Date: 20080829
  Transmission Date: 20090109
  Serious: Yes (Other)
  Sender: FDA-Public Use
  Company Number: US-PFIZER INC-2008028607

PATIENT
  Sex: Female
  Weight: 53.5 kg

DRUGS (5)
  1. CHANTIX [Suspect]
     Indication: SMOKING CESSATION THERAPY
     Dates: start: 20080101, end: 20080301
  2. PAXIL [Concomitant]
  3. SPIRIVA [Concomitant]
     Indication: CHRONIC OBSTRUCTIVE PULMONARY DISEASE
  4. METHADONE HCL [Concomitant]
  5. OXYCODONE HCL [Concomitant]

REACTIONS (3)
  - DEPRESSION [None]
  - INSOMNIA [None]
  - NIGHTMARE [None]
